FAERS Safety Report 19470308 (Version 1)
Quarter: 2021Q2

REPORT INFORMATION
  Report Type: Spontaneous
  Country: CN (occurrence: CN)
  Receive Date: 20210628
  Receipt Date: 20210628
  Transmission Date: 20210717
  Serious: Yes (Other)
  Sender: FDA-Public Use
  Company Number: CN-PFIZER INC-2021738945

PATIENT
  Age: 24 Year
  Sex: Female
  Weight: 50 kg

DRUGS (1)
  1. METHOTREXATE. [Suspect]
     Active Substance: METHOTREXATE
     Indication: BENIGN HYDATIDIFORM MOLE
     Dosage: 20 MG, 1X/DAY
     Route: 030
     Dates: start: 20210506, end: 20210510

REACTIONS (2)
  - Myelosuppression [Recovering/Resolving]
  - Mouth ulceration [Recovering/Resolving]

NARRATIVE: CASE EVENT DATE: 20210512
